FAERS Safety Report 9303282 (Version 4)
Quarter: 2014Q1

REPORT INFORMATION
  Report Type: Report from Study
  Country: US (occurrence: US)
  Receive Date: 20130522
  Receipt Date: 20140327
  Transmission Date: 20141002
  Serious: Yes (Hospitalization)
  Sender: FDA-Public Use
  Company Number: US-ROCHE-1226919

PATIENT
  Age: 60 Year
  Sex: Female
  Weight: 64 kg

DRUGS (12)
  1. TRASTUZUMAB [Suspect]
     Indication: BREAST CANCER METASTATIC
     Route: 065
  2. PERTUZUMAB [Suspect]
     Indication: BREAST CANCER METASTATIC
     Route: 065
  3. TAXOTERE [Suspect]
     Indication: BREAST CANCER METASTATIC
     Route: 065
  4. SPIRONOLACTONE [Concomitant]
  5. CEFEPIME [Concomitant]
  6. LEVAQUIN [Concomitant]
  7. CARVEDILOL [Concomitant]
     Route: 065
  8. LISINOPRIL [Concomitant]
  9. LASIX [Concomitant]
  10. DIGOXIN [Concomitant]
  11. VANCOMYCIN [Concomitant]
  12. ABRAXANE [Concomitant]

REACTIONS (3)
  - Febrile neutropenia [Recovered/Resolved]
  - Left ventricular dysfunction [Not Recovered/Not Resolved]
  - Cardiac failure congestive [Not Recovered/Not Resolved]
